FAERS Safety Report 19112341 (Version 1)
Quarter: 2021Q2

REPORT INFORMATION
  Report Type: Spontaneous
  Country: US (occurrence: US)
  Receive Date: 20210409
  Receipt Date: 20210409
  Transmission Date: 20210717
  Serious: No
  Sender: FDA-Public Use
  Company Number: US-FRESENIUS KABI-FK202103580

PATIENT

DRUGS (1)
  1. SENSORCAINE WITH EPINEPHRINE [Suspect]
     Active Substance: BUPIVACAINE HYDROCHLORIDE\EPINEPHRINE BITARTRATE
     Indication: NERVE BLOCK
     Dosage: UNKNOWN
     Route: 065

REACTIONS (1)
  - Therapeutic product effect decreased [Unknown]
